FAERS Safety Report 4467293-6 (Version None)
Quarter: 2004Q4

REPORT INFORMATION
  Report Type: 
  Country: None (occurrence: None)
  Receive Date: 20041006
  Receipt Date: 20040802
  Transmission Date: 20050328
  Serious: Yes (Other)
  Sender: FDA-Public Use
  Company Number: CH-GLAXOSMITHKLINE-B0341697A

PATIENT
  Age: 51 Year
  Sex: Female
  Weight: 70 kg

DRUGS (4)
  1. SEREVENT [Suspect]
     Indication: CHRONIC OBSTRUCTIVE AIRWAYS DISEASE EXACERBATED
     Dosage: 50MCG TWICE PER DAY
     Route: 055
     Dates: start: 20040322
  2. SERETIDE [Suspect]
     Route: 055
     Dates: start: 20040501, end: 20040701
  3. VENTOLIN [Concomitant]
     Route: 055
     Dates: start: 20040322
  4. DOSPIR [Concomitant]
     Dates: start: 20040322

REACTIONS (10)
  - AGITATION [None]
  - ASTHMA [None]
  - COUGH [None]
  - DRUG INEFFECTIVE [None]
  - DYSPNOEA [None]
  - PAIN [None]
  - PHARMACEUTICAL PRODUCT COMPLAINT [None]
  - PNEUMONIA [None]
  - PYREXIA [None]
  - RESPIRATORY DISORDER [None]
